FAERS Safety Report 14861590 (Version 1)
Quarter: 2018Q2

REPORT INFORMATION
  Report Type: Spontaneous
  Country: US (occurrence: US)
  Receive Date: 20180508
  Receipt Date: 20180508
  Transmission Date: 20180711
  Serious: No
  Sender: FDA-Public Use
  Company Number: US-PERRIGO-18US003313

PATIENT
  Age: 76 Year
  Sex: Female
  Weight: 73.92 kg

DRUGS (5)
  1. PERMETHRIN. [Suspect]
     Active Substance: PERMETHRIN
     Indication: ACARODERMATITIS
     Dosage: 30 G, TWICE IN 7 DAYS
     Route: 061
     Dates: start: 20171220, end: 20171227
  2. PERMETHRIN. [Suspect]
     Active Substance: PERMETHRIN
     Dosage: 30 G, TWICE IN 7 DAYS
     Route: 061
     Dates: start: 201802, end: 201802
  3. PERMETHRIN. [Suspect]
     Active Substance: PERMETHRIN
     Dosage: 30 G, TWICE IN 7 DAYS
     Route: 061
     Dates: start: 201801, end: 201801
  4. ATENOLOL. [Concomitant]
     Active Substance: ATENOLOL
     Indication: HYPERTENSION
     Dosage: UNK
     Route: 048
  5. ENALAPRIL [Concomitant]
     Active Substance: ENALAPRIL
     Indication: HYPERTENSION
     Dosage: UNK
     Route: 048

REACTIONS (1)
  - Drug ineffective [Unknown]

NARRATIVE: CASE EVENT DATE: 201712
